FAERS Safety Report 8914478 (Version 2)
Quarter: 2012Q4

REPORT INFORMATION
  Report Type: 
  Country: JP (occurrence: JP)
  Receive Date: 20121116
  Receipt Date: 20121203
  Transmission Date: 20130627
  Serious: Yes (Hospitalization, Other)
  Sender: FDA-Public Use
  Company Number: JP-UCBSA-070371

PATIENT
  Sex: Male

DRUGS (3)
  1. E KEPPRA [Suspect]
     Indication: MYOCLONIC EPILEPSY
     Route: 048
  2. RIVOTRIL [Suspect]
     Indication: MYOCLONIC EPILEPSY
     Dosage: UNKNOWN DOSE
     Route: 048
  3. TEGRETOL [Concomitant]
     Dosage: UNKNOWN DOSE
     Route: 048

REACTIONS (1)
  - Neuroleptic malignant syndrome [Recovering/Resolving]
